FAERS Safety Report 5949091-7 (Version None)
Quarter: 2008Q4

REPORT INFORMATION
  Report Type: 
  Country: None (occurrence: None)
  Receive Date: 20081111
  Receipt Date: 20081103
  Transmission Date: 20090506
  Serious: No
  Sender: FDA-Public Use
  Company Number: US-B.I. PHARMACEUTICALS,INC./RIDGEFIELD-2008-BP-16690BP

PATIENT
  Age: 66 Year
  Sex: Female

DRUGS (3)
  1. SPIRIVA [Suspect]
     Indication: CHRONIC OBSTRUCTIVE PULMONARY DISEASE
     Dosage: 18MCG
     Route: 055
     Dates: start: 20080701
  2. ACTONEL [Concomitant]
     Indication: PROPHYLAXIS
  3. RESTASIS [Concomitant]
     Indication: DRY EYE

REACTIONS (1)
  - BLOOD PRESSURE INCREASED [None]
